FAERS Safety Report 18332033 (Version 4)
Quarter: 2020Q4

REPORT INFORMATION
  Report Type: Spontaneous
  Country: US (occurrence: US)
  Receive Date: 20200930
  Receipt Date: 20201204
  Transmission Date: 20210113
  Serious: Yes (Life-Threatening)
  Sender: FDA-Public Use
  Company Number: US-PFIZER INC-2020376060

PATIENT
  Age: 64 Year
  Sex: Male

DRUGS (9)
  1. FENTANYL CITRATE. [Interacting]
     Active Substance: FENTANYL CITRATE
     Indication: SEDATION
     Dosage: 750 UG
     Route: 040
  2. METHYLENE BLUE. [Interacting]
     Active Substance: METHYLENE BLUE
     Indication: VASOPLEGIA SYNDROME
     Dosage: 100 MG (ABOUT 90 MINUTES)
     Route: 040
  3. DEXMEDETOMIDINE. [Concomitant]
     Active Substance: DEXMEDETOMIDINE
     Indication: SEDATION
     Dosage: UNK
     Route: 042
  4. DEXMEDETOMIDINE. [Concomitant]
     Active Substance: DEXMEDETOMIDINE
     Indication: PAIN
  5. NOREPINEPHRINE. [Concomitant]
     Active Substance: NOREPINEPHRINE
     Indication: HYPOTENSION
     Dosage: TITRATED UP TO 0.1 UG/ KG/MIN
  6. SERTRALINE HCL [Suspect]
     Active Substance: SERTRALINE HYDROCHLORIDE
     Indication: DEPRESSION
     Dosage: 100 MG, DAILY
     Route: 048
  7. EPINEPHRINE. [Concomitant]
     Active Substance: EPINEPHRINE
     Indication: HYPOTENSION
     Dosage: TITRATED UP TO 0.06 UG/KG/MIN
  8. VASOPRESSIN. [Concomitant]
     Active Substance: VASOPRESSIN
     Indication: HYPOTENSION
     Dosage: TITRATED UP TO 4 U/H
  9. FENTANYL CITRATE. [Interacting]
     Active Substance: FENTANYL CITRATE
     Indication: PAIN
     Dosage: UNK, BOLUSES AS NEEDED

REACTIONS (2)
  - Drug interaction [Recovered/Resolved]
  - Serotonin syndrome [Recovered/Resolved]
